FAERS Safety Report 17827387 (Version 4)
Quarter: 2020Q2

REPORT INFORMATION
  Report Type: Spontaneous
  Country: BR (occurrence: BR)
  Receive Date: 20200527
  Receipt Date: 20200625
  Transmission Date: 20200714
  Serious: Yes (Other)
  Sender: FDA-Public Use
  Company Number: BR-TEVA-2020-BR-1240825

PATIENT
  Age: 71 Year
  Sex: Female
  Weight: 50 kg

DRUGS (8)
  1. ESTRADOT [Concomitant]
     Active Substance: ESTRADIOL
  2. TEVAOXALI [Suspect]
     Active Substance: OXALIPLATIN
     Indication: ADENOCARCINOMA OF COLON
     Dosage: 129.2 MILLIGRAM DAILY;
     Route: 065
     Dates: start: 20200330
  3. MONTELAIR [Concomitant]
     Active Substance: MONTELUKAST SODIUM
  4. RELVAR ELLIPTA [Concomitant]
     Active Substance: FLUTICASONE FUROATE\VILANTEROL TRIFENATATE
  5. SPIRIVA RESPIMAT [Concomitant]
     Active Substance: TIOTROPIUM BROMIDE
  6. VERAPAMIL [Concomitant]
     Active Substance: VERAPAMIL HYDROCHLORIDE
  7. DESALEX [Concomitant]
     Active Substance: DESLORATADINE
  8. LUTENIL [Concomitant]

REACTIONS (9)
  - Oxygen saturation decreased [Recovered/Resolved]
  - Laryngospasm [Recovered/Resolved]
  - Anxiety [Recovered/Resolved]
  - Nasal flaring [Recovered/Resolved]
  - Hypertension [Recovered/Resolved]
  - Suffocation feeling [Recovered/Resolved]
  - Breath sounds abnormal [Recovered/Resolved]
  - Dyspnoea [Recovered/Resolved]
  - Tachycardia [Recovered/Resolved]

NARRATIVE: CASE EVENT DATE: 20200330
